FAERS Safety Report 9438128 (Version 1)
Quarter: 2013Q3

REPORT INFORMATION
  Report Type: Spontaneous
  Country: US (occurrence: US)
  Receive Date: 20130802
  Receipt Date: 20130802
  Transmission Date: 20140515
  Serious: Yes (Other)
  Sender: FDA-Public Use
  Company Number: US-BRISTOL-MYERS SQUIBB COMPANY-16839318

PATIENT
  Sex: 0

DRUGS (3)
  1. COUMADIN [Suspect]
     Indication: STENT PLACEMENT
  2. EFIENT [Suspect]
     Indication: STENT PLACEMENT
     Dosage: TAB
  3. ASPIRIN [Suspect]
     Indication: STENT PLACEMENT

REACTIONS (1)
  - Cardiac tamponade [Unknown]
